FAERS Safety Report 9415719 (Version 3)
Quarter: 2013Q4

REPORT INFORMATION
  Report Type: Spontaneous
  Country: JP (occurrence: JP)
  Receive Date: 20130723
  Receipt Date: 20131127
  Transmission Date: 20140711
  Serious: Yes (Hospitalization)
  Sender: FDA-Public Use
  Company Number: JP-B.I. PHARMACEUTICALS,INC./RIDGEFIELD-2013-BI-21329NB

PATIENT
  Age: 61 Year
  Sex: Female
  Weight: 41.2 kg

DRUGS (9)
  1. TRAZENTA [Suspect]
     Indication: TYPE 2 DIABETES MELLITUS
     Dosage: 5 MG
     Route: 048
     Dates: start: 20130501, end: 20130709
  2. AZILVA [Concomitant]
     Dosage: 20 MG
     Route: 065
     Dates: start: 20130423
  3. LIVALO [Concomitant]
     Dosage: 2 MG
     Route: 048
     Dates: start: 20120626, end: 20130709
  4. BAYASPIRIN [Concomitant]
     Dosage: 100 MG
     Route: 048
     Dates: start: 20130423, end: 20130709
  5. MAINTATE [Concomitant]
     Dosage: 1.25 MG
     Route: 048
     Dates: start: 20130423, end: 20130709
  6. PLETAAL [Concomitant]
     Dosage: 200 MG
     Route: 048
     Dates: start: 20120626, end: 20130709
  7. CILOSTAZOL [Concomitant]
     Dosage: 200 MG
     Route: 065
     Dates: start: 20130423
  8. CALFINA [Concomitant]
     Dosage: 0.5 MCG
     Route: 048
     Dates: end: 20130709
  9. SENNOSIDE [Concomitant]
     Dosage: 24 MG
     Route: 065
     Dates: start: 20130423

REACTIONS (9)
  - Hepatic function abnormal [Not Recovered/Not Resolved]
  - Back pain [Recovered/Resolved]
  - Blood pressure decreased [Unknown]
  - Hyperhidrosis [Unknown]
  - Vomiting [Unknown]
  - Back pain [Unknown]
  - Nausea [Unknown]
  - Aspartate aminotransferase increased [Recovered/Resolved]
  - Alanine aminotransferase increased [Recovered/Resolved]
